FAERS Safety Report 9380254 (Version 1)
Quarter: 2013Q2

REPORT INFORMATION
  Report Type: Spontaneous
  Country: GB (occurrence: None)
  Receive Date: 20130628
  Receipt Date: 20130628
  Transmission Date: 20140414
  Serious: Yes (Hospitalization)
  Sender: FDA-Public Use
  Company Number: GER/UKI/13/0030194

PATIENT
  Age: 88 Year
  Sex: Male
  Weight: 80 kg

DRUGS (7)
  1. OMEPRAZOLE (OMEPRAZOLE) [Suspect]
     Indication: PRODUCT USED FOR UNKNOWN INDICATION
     Route: 048
     Dates: start: 20130505, end: 20130530
  2. CLARITHROMYCIN (CLARITHROMYCIN) [Suspect]
     Indication: HELICOBACTER INFECTION
     Route: 048
     Dates: start: 20130522, end: 20130530
  3. ASPIRIN (ACETYLSALICYLIC ACID) [Concomitant]
  4. DIPYRIDAMOLE (DIPYRIDAMOLE) [Concomitant]
  5. FELODIPINE (FELODIPINE) [Concomitant]
  6. PERINDOPRIL (PERINDOPRIL) [Concomitant]
  7. SIMVASTATIN (SIMVASTATIN) [Concomitant]

REACTIONS (4)
  - Confusional state [None]
  - Aphasia [None]
  - Hypertonia [None]
  - Dysphagia [None]
